FAERS Safety Report 12849139 (Version 1)
Quarter: 2016Q4

REPORT INFORMATION
  Report Type: Spontaneous
  Country: FR (occurrence: FR)
  Receive Date: 20161014
  Receipt Date: 20161014
  Transmission Date: 20170207
  Serious: Yes (Disabling)
  Sender: FDA-Public Use
  Company Number: FR-GUERBET LLC-1058348

PATIENT
  Age: 34 Year
  Sex: Female

DRUGS (1)
  1. LIPIODOL [Suspect]
     Active Substance: ETHIODIZED OIL
     Indication: SPINAL MYELOGRAM
     Route: 037

REACTIONS (2)
  - Medication residue present [Recovered/Resolved with Sequelae]
  - Arachnoiditis [Recovered/Resolved with Sequelae]
